FAERS Safety Report 7457280-8 (Version None)
Quarter: 2011Q2

REPORT INFORMATION
  Report Type: 
  Country: None (occurrence: None)
  Receive Date: 20110504
  Receipt Date: 20110426
  Transmission Date: 20111010
  Serious: Yes (Hospitalization)
  Sender: FDA-Public Use
  Company Number: GR-NOVOPROD-323778

PATIENT
  Sex: Male
  Weight: 3.8 kg

DRUGS (2)
  1. NOVORAPID [Suspect]
     Indication: TYPE 1 DIABETES MELLITUS
     Dosage: 6 U IN THE MORNING, 8 U NOON AND 8 U IN THE NIGHT
     Route: 064
     Dates: start: 20060101
  2. LEVEMIR [Suspect]
     Indication: TYPE 1 DIABETES MELLITUS
     Dosage: 58 IU, QD
     Route: 064
     Dates: start: 20060101

REACTIONS (8)
  - TACHYPNOEA [None]
  - CARDIAC MURMUR [None]
  - CARDIAC HYPERTROPHY [None]
  - DRUG EXPOSURE DURING PREGNANCY [None]
  - HYDROCELE [None]
  - JAUNDICE [None]
  - PREMATURE BABY [None]
  - HYPOGLYCAEMIA [None]
